FAERS Safety Report 11220206 (Version 1)
Quarter: 2015Q2

REPORT INFORMATION
  Report Type: Report from Study
  Country: US (occurrence: US)
  Receive Date: 20150625
  Receipt Date: 20150625
  Transmission Date: 20150821
  Serious: No
  Sender: FDA-Public Use
  Company Number: US-EXELIXIS-CABO-14004248

PATIENT
  Sex: Female

DRUGS (7)
  1. SYNTHROID [Concomitant]
     Active Substance: LEVOTHYROXINE SODIUM
  2. CABOZANTINIB [Suspect]
     Active Substance: CABOZANTINIB
     Dosage: 60 MG, BID
     Route: 048
     Dates: start: 20131122, end: 20131225
  3. CABOZANTINIB [Suspect]
     Active Substance: CABOZANTINIB
     Dosage: 140 MG, QD
     Route: 048
     Dates: start: 20141003, end: 20150518
  4. CABOZANTINIB [Suspect]
     Active Substance: CABOZANTINIB
     Indication: THYROID CANCER
     Dosage: 60 MG, QD
     Route: 048
     Dates: start: 20130812, end: 20130825
  5. CABOZANTINIB [Suspect]
     Active Substance: CABOZANTINIB
     Dosage: 120 MG, QD
     Route: 048
     Dates: start: 20131226, end: 20141002
  6. CABOZANTINIB [Suspect]
     Active Substance: CABOZANTINIB
     Dosage: 80 MG, QD
     Route: 048
     Dates: start: 20130826, end: 20131114
  7. CABOZANTINIB [Suspect]
     Active Substance: CABOZANTINIB
     Dosage: 120 MG, QD
     Route: 048
     Dates: start: 20150520

REACTIONS (2)
  - Rash [Unknown]
  - Malaise [Unknown]

NARRATIVE: CASE EVENT DATE: 2014
